FAERS Safety Report 7573730-0 (Version None)
Quarter: 2011Q2

REPORT INFORMATION
  Report Type: 
  Country: None (occurrence: None)
  Receive Date: 20110627
  Receipt Date: 20110620
  Transmission Date: 20111010
  Serious: Yes (Other)
  Sender: FDA-Public Use
  Company Number: US-PFIZER INC-2011054604

PATIENT
  Sex: Female
  Weight: 68 kg

DRUGS (3)
  1. ZITHROMAX [Concomitant]
     Indication: BRONCHITIS
     Dosage: 1 TABLET DAILY
     Route: 048
  2. GUAIFENESIN [Suspect]
     Indication: BRONCHITIS
     Dosage: UNK
     Route: 048
     Dates: start: 20110101
  3. XALATAN [Concomitant]
     Indication: GLAUCOMA
     Dosage: ONE DROP IN BOTH EYES DAILY AT BED TIME
     Route: 047

REACTIONS (5)
  - ABDOMINAL DISCOMFORT [None]
  - CHOKING [None]
  - PRODUCT CONTAMINATION PHYSICAL [None]
  - OROPHARYNGEAL PAIN [None]
  - GASTROOESOPHAGEAL REFLUX DISEASE [None]
